FAERS Safety Report 9437132 (Version 1)
Quarter: 2013Q3

REPORT INFORMATION
  Report Type: Spontaneous
  Country: US (occurrence: US)
  Receive Date: 20130802
  Receipt Date: 20130802
  Transmission Date: 20140515
  Serious: Yes (Other)
  Sender: FDA-Public Use
  Company Number: US-SANOFI-AVENTIS-2013SA077602

PATIENT
  Age: 48 Year
  Sex: Male

DRUGS (3)
  1. LANTUS [Suspect]
     Indication: TYPE 2 DIABETES MELLITUS
     Dosage: DOSE: 25-30 UNITS NIGHTLY, STOPPED 2-3 WEEKS AGO
     Route: 065
     Dates: end: 201307
  2. GLYBURIDE [Suspect]
  3. METFORMIN [Suspect]

REACTIONS (2)
  - Renal disorder [Recovered/Resolved]
  - Blood glucose abnormal [Recovered/Resolved]
